FAERS Safety Report 20695208 (Version 1)
Quarter: 2022Q2

REPORT INFORMATION
  Report Type: Spontaneous
  Country: US (occurrence: None)
  Receive Date: 20220408
  Receipt Date: 20220408
  Transmission Date: 20220721
  Serious: Yes (Disabling)
  Sender: FDA-Public Use
  Company Number: None

PATIENT
  Age: 73 Year
  Sex: Female
  Weight: 77.8 kg

DRUGS (1)
  1. PROTHROMBIN COMPLEX CONCENTRATE NOS [Suspect]
     Active Substance: COAGULATION FACTOR IX HUMAN\COAGULATION FACTOR VII HUMAN\COAGULATION FACTOR X HUMAN\PROTHROMBIN
     Indication: Anticoagulant therapy
     Dosage: OTHER FREQUENCY : ONCE?
     Route: 042
     Dates: start: 20220327, end: 20220327

REACTIONS (5)
  - Sepsis [None]
  - Pyelonephritis [None]
  - Nephrolithiasis [None]
  - Embolism venous [None]
  - Hemiparesis [None]

NARRATIVE: CASE EVENT DATE: 20220405
